FAERS Safety Report 6215890-X (Version None)
Quarter: 2009Q2

REPORT INFORMATION
  Report Type: 
  Country: None (occurrence: None)
  Receive Date: 20090605
  Receipt Date: 20090602
  Transmission Date: 20091009
  Serious: Yes (Other)
  Sender: FDA-Public Use
  Company Number: NO-ROCHE-635826

PATIENT
  Age: 18 Year
  Sex: Male

DRUGS (1)
  1. ROACCUTAN [Suspect]
     Route: 048
     Dates: start: 20080801, end: 20090201

REACTIONS (6)
  - COGNITIVE DISORDER [None]
  - DIZZINESS [None]
  - ERYTHEMA [None]
  - EXERCISE TOLERANCE DECREASED [None]
  - HEADACHE [None]
  - PHOTOSENSITIVITY REACTION [None]
